FAERS Safety Report 5112650-8 (Version None)
Quarter: 2006Q3

REPORT INFORMATION
  Report Type: 
  Country: None (occurrence: None)
  Receive Date: 20060918
  Receipt Date: 20060918
  Transmission Date: 20061208
  Serious: Yes (Other)
  Sender: FDA-Public Use
  Company Number: None

PATIENT
  Age: 31 Year
  Sex: Male

DRUGS (1)
  1. KETEK [Suspect]
     Dosage: SEE IMAGE
     Dates: start: 20051007, end: 20051011

REACTIONS (3)
  - HEPATITIS ACUTE [None]
  - HEPATOCELLULAR DAMAGE [None]
  - PAIN [None]
